FAERS Safety Report 23853969 (Version 2)
Quarter: 2024Q4

REPORT INFORMATION
  Report Type: Spontaneous
  Country: AU (occurrence: AU)
  Receive Date: 20240514
  Receipt Date: 20241121
  Transmission Date: 20250115
  Serious: Yes (Hospitalization)
  Sender: MYLAN
  Company Number: AU-MYLANLABS-2024M1043484

PATIENT
  Sex: Female

DRUGS (2)
  1. CLOZARIL [Suspect]
     Active Substance: CLOZAPINE
     Indication: Schizophrenia
     Dosage: 675 MILLIGRAM
     Route: 048
     Dates: start: 20110420
  2. LORAZEPAM [Concomitant]
     Active Substance: LORAZEPAM
     Dosage: 4 MILLIGRAM, QD (2 MG IN MORNING, 1 MG IN MIDDAY AND 1 MG AT NIGHT)
     Route: 048

REACTIONS (1)
  - Hospitalisation [Unknown]
